FAERS Safety Report 17943395 (Version 2)
Quarter: 2021Q2

REPORT INFORMATION
  Report Type: Spontaneous
  Country: DE (occurrence: DE)
  Receive Date: 20200625
  Receipt Date: 20210628
  Transmission Date: 20210717
  Serious: Yes (Other)
  Sender: FDA-Public Use
  Company Number: DE-TEVA-2020-DE-1790390

PATIENT
  Age: 13 Year
  Sex: Male

DRUGS (9)
  1. PREDNISOLONE. [Suspect]
     Active Substance: PREDNISOLONE
     Indication: IMMUNOSUPPRESSANT DRUG THERAPY
     Route: 065
  2. CEFTAZIDIME. [Concomitant]
     Active Substance: CEFTAZIDIME
     Indication: WOUND ABSCESS
  3. MYCOPHENOLIC ACID. [Suspect]
     Active Substance: MYCOPHENOLIC ACID
     Indication: IMMUNOSUPPRESSANT DRUG THERAPY
     Route: 065
  4. AVIBACTAM [Concomitant]
     Active Substance: AVIBACTAM
     Indication: WOUND ABSCESS
     Dosage: 562.5 MILLIGRAM DAILY; THREE TIMES PER DAY
     Route: 042
  5. CEFTAZIDIME. [Concomitant]
     Active Substance: CEFTAZIDIME
     Indication: PSEUDOMONAS INFECTION
     Route: 065
  6. COLISTIN [Concomitant]
     Active Substance: COLISTIN
     Indication: PSEUDOMONAS INFECTION
  7. COLISTIN [Concomitant]
     Active Substance: COLISTIN
     Indication: WOUND ABSCESS
     Dosage: 4 MU DAILY;
     Route: 042
  8. TACROLIMUS. [Suspect]
     Active Substance: TACROLIMUS
     Indication: IMMUNOSUPPRESSANT DRUG THERAPY
     Route: 065
  9. AVIBACTAM [Concomitant]
     Active Substance: AVIBACTAM
     Indication: PSEUDOMONAS INFECTION

REACTIONS (2)
  - Pseudomonas infection [Recovered/Resolved]
  - Wound abscess [Recovered/Resolved]
